FAERS Safety Report 19433280 (Version 2)
Quarter: 2021Q2

REPORT INFORMATION
  Report Type: Report from Study
  Country: CN (occurrence: CN)
  Receive Date: 20210617
  Receipt Date: 20210625
  Transmission Date: 20210717
  Serious: Yes (Death, Life-Threatening)
  Sender: FDA-Public Use
  Company Number: CN-ROCHE-2849148

PATIENT
  Age: 69 Year
  Sex: Male
  Weight: 70 kg

DRUGS (4)
  1. BEVACIZUMAB. [Suspect]
     Active Substance: BEVACIZUMAB
     Indication: NON-SMALL CELL LUNG CANCER STAGE IV
     Dosage: START DATE OF MOST RECENT DOSE OF BEVACIZUMAB (1065 MG) PRIOR TO EVENT ONSET: 07/APR/2021
     Route: 042
     Dates: start: 20210201
  2. ATEZOLIZUMAB. [Suspect]
     Active Substance: ATEZOLIZUMAB
     Indication: NON-SMALL CELL LUNG CANCER STAGE IV
     Dosage: ON DAY 1 OF EACH 21?DAY CYCLE?START DATE OF MOST RECENT DOSE OF BLINDED ATEZOLIZUMAB PRIOR TO EVENT
     Route: 041
     Dates: start: 20210201
  3. CARBOPLATIN. [Suspect]
     Active Substance: CARBOPLATIN
     Indication: NON-SMALL CELL LUNG CANCER STAGE IV
     Dosage: START DATE OF MOST RECENT DOSE OF CARBOPLATIN (593 MG) PRIOR TO EVENT ONSET: 07/APR/2021
     Route: 042
     Dates: start: 20210201
  4. PEMETREXED. [Suspect]
     Active Substance: PEMETREXED
     Indication: NON-SMALL CELL LUNG CANCER STAGE IV
     Dosage: START DATE OF MOST RECENT DOSE OF PEMETREXED (679 MG) PRIOR TO EVENT ONSET: 28/MAY/2021
     Route: 042
     Dates: start: 20210201

REACTIONS (2)
  - Hepatic failure [Not Recovered/Not Resolved]
  - Renal failure [Not Recovered/Not Resolved]

NARRATIVE: CASE EVENT DATE: 202106
